FAERS Safety Report 7732353-0 (Version None)
Quarter: 2011Q3

REPORT INFORMATION
  Report Type: 
  Country: None (occurrence: None)
  Receive Date: 20110906
  Receipt Date: 20110901
  Transmission Date: 20111222
  Serious: Yes (Other)
  Sender: FDA-Public Use
  Company Number: US-PFIZER INC-2011204965

PATIENT
  Sex: Female

DRUGS (2)
  1. XANAX [Suspect]
     Dosage: UNK
     Dates: end: 20110101
  2. NEURONTIN [Suspect]
     Indication: ANXIETY
     Dosage: 300 MG, 3X/DAY
     Route: 048
     Dates: start: 20110812, end: 20110819

REACTIONS (4)
  - ANXIETY [None]
  - SUICIDAL IDEATION [None]
  - AMNESIA [None]
  - DEPRESSION [None]
